FAERS Safety Report 13591737 (Version 1)
Quarter: 2017Q2

REPORT INFORMATION
  Report Type: Spontaneous
  Country: US (occurrence: US)
  Receive Date: 20170530
  Receipt Date: 20170530
  Transmission Date: 20170830
  Serious: Yes (Hospitalization, Disabling)
  Sender: FDA-Public Use
  Company Number: None

PATIENT
  Age: 71 Year
  Sex: Male
  Weight: 86.4 kg

DRUGS (18)
  1. ENTRESTO [Suspect]
     Active Substance: SACUBITRIL\VALSARTAN
     Indication: CARDIAC FAILURE
     Dosage: ?          QUANTITY:1 TABLET(S);?
     Route: 048
     Dates: start: 20160601, end: 20170315
  2. RANEXA [Concomitant]
     Active Substance: RANOLAZINE
  3. COREG [Concomitant]
     Active Substance: CARVEDILOL
  4. FOLIC ACID. [Concomitant]
     Active Substance: FOLIC ACID
  5. LORAZEPAM. [Concomitant]
     Active Substance: LORAZEPAM
  6. FISH OIL [Concomitant]
     Active Substance: FISH OIL
  7. LANTUS [Concomitant]
     Active Substance: INSULIN GLARGINE
  8. ELIQUIS [Concomitant]
     Active Substance: APIXABAN
  9. AMIODARONE [Concomitant]
     Active Substance: AMIODARONE
  10. VITAMIN D [Concomitant]
     Active Substance: CHOLECALCIFEROL
  11. ISOSORBIDE MONONITRATE. [Concomitant]
     Active Substance: ISOSORBIDE MONONITRATE
  12. MECLIZINE [Concomitant]
     Active Substance: MECLIZINE HYDROCHLORIDE
  13. STOOL SOFTENER (DOCUSATE) [Concomitant]
     Active Substance: DOCUSATE
  14. POTASSIUM CHLORIDE. [Concomitant]
     Active Substance: POTASSIUM CHLORIDE
  15. BUPROPION XL [Concomitant]
     Active Substance: BUPROPION
  16. LASIX [Concomitant]
     Active Substance: FUROSEMIDE
  17. ATORVASTATIN [Concomitant]
     Active Substance: ATORVASTATIN
  18. PLAVIX [Concomitant]
     Active Substance: CLOPIDOGREL BISULFATE

REACTIONS (3)
  - Gait disturbance [None]
  - Dizziness [None]
  - Asthenia [None]

NARRATIVE: CASE EVENT DATE: 20170315
